FAERS Safety Report 9730964 (Version 2)
Quarter: 2013Q4

REPORT INFORMATION
  Report Type: Report from Study
  Country: NL (occurrence: NL)
  Receive Date: 20131203
  Receipt Date: 20131224
  Transmission Date: 20140711
  Serious: Yes (Other)
  Sender: FDA-Public Use
  Company Number: PHHY2013NL139585

PATIENT
  Age: 69 Year
  Sex: Male

DRUGS (12)
  1. ZOMETA [Suspect]
     Indication: METASTASES TO BONE
     Dosage: 4 MG/100ML, ONCE PER 4 WEKS
     Route: 042
  2. ZOMETA [Suspect]
     Dosage: 4 MG, UNK
     Route: 042
     Dates: start: 2012
  3. ZOMETA [Suspect]
     Dosage: 4 MG/100ML, ONCE PER 4 WEKS
     Route: 042
     Dates: start: 20120427
  4. ZOMETA [Suspect]
     Dosage: 4 MG/100ML, ONCE PER 4 WEKS
     Route: 042
     Dates: start: 20131010
  5. ZOMETA [Suspect]
     Dosage: 4 MG/100ML, ONCE PER 4 WEKS
     Route: 042
     Dates: start: 20131129
  6. FUROSEMIDE [Concomitant]
     Dosage: 1DD40
  7. DICLOFENAC [Concomitant]
     Dosage: UNK UKN, UNK
  8. HALDOL [Concomitant]
     Dosage: UNK UKN, UNK
  9. BISACODYL [Concomitant]
     Dosage: UNK UKN, UNK
  10. ESOMEPRAZOLE [Concomitant]
     Dosage: UNK UKN, UNK
  11. FRAXIPARINE [Concomitant]
     Dosage: UNK UKN, UNK
  12. CABAZITAXEL [Concomitant]
     Dosage: UNK UKN, UNK

REACTIONS (3)
  - Pneumonia [Recovered/Resolved]
  - Dehydration [Recovered/Resolved]
  - Hypophagia [Recovered/Resolved]
